FAERS Safety Report 5025204-9 (Version None)
Quarter: 2006Q2

REPORT INFORMATION
  Report Type: 
  Country: None (occurrence: None)
  Receive Date: 20060613
  Receipt Date: 20060608
  Transmission Date: 20061013
  Serious: Yes (Hospitalization)
  Sender: FDA-Public Use
  Company Number: FR-GLAXOSMITHKLINE-B0426807A

PATIENT
  Age: 56 Year
  Sex: Female

DRUGS (6)
  1. AUGMENTIN '125' [Suspect]
     Indication: SUPERINFECTION LUNG
     Route: 048
     Dates: start: 20060301, end: 20060301
  2. SECTRAL [Concomitant]
     Dosage: 200MG TWICE PER DAY
     Route: 065
  3. ALDACTONE [Concomitant]
     Route: 065
     Dates: end: 20060314
  4. LASILIX [Concomitant]
     Dosage: 80MG PER DAY
     Route: 065
     Dates: end: 20060314
  5. PARACETAMOL [Concomitant]
     Route: 065
  6. LAMALINE [Concomitant]
     Route: 065

REACTIONS (7)
  - ABDOMINAL PAIN [None]
  - ABDOMINAL RIGIDITY [None]
  - CLOSTRIDIAL INFECTION [None]
  - DEHYDRATION [None]
  - DIARRHOEA [None]
  - NAUSEA [None]
  - ORAL FUNGAL INFECTION [None]
